FAERS Safety Report 21514709 (Version 2)
Quarter: 2022Q4

REPORT INFORMATION
  Report Type: Spontaneous
  Country: US (occurrence: US)
  Receive Date: 20221027
  Receipt Date: 20221128
  Transmission Date: 20230112
  Serious: Yes (Other)
  Sender: FDA-Public Use
  Company Number: US-PFIZER INC-PV202200089173

PATIENT
  Sex: Male

DRUGS (17)
  1. BEVACIZUMAB [Suspect]
     Active Substance: BEVACIZUMAB
     Indication: Adenocarcinoma metastatic
     Dosage: FIRST CHEMOTHERAPY WITH XELOX
     Dates: start: 20211015, end: 202112
  2. BEVACIZUMAB [Suspect]
     Active Substance: BEVACIZUMAB
     Indication: Colon cancer
     Dosage: KT FOLFOXIRI AND BEVACIZUMAB BOTH IN 100% DOZE
     Dates: start: 20220107
  3. BEVACIZUMAB [Suspect]
     Active Substance: BEVACIZUMAB
     Dosage: CHEMOTHERAPY FOLFIRI + BEVACIZUMAB
     Dates: start: 202204, end: 202207
  4. IRINOTECAN HYDROCHLORIDE [Suspect]
     Active Substance: IRINOTECAN HYDROCHLORIDE
     Indication: Adenocarcinoma metastatic
     Dosage: 5TH CHEMO; KT FOLFOXIRI AND BEVACIZUMAB BOTH IN 100% DOZE
     Dates: start: 20220107
  5. IRINOTECAN HYDROCHLORIDE [Suspect]
     Active Substance: IRINOTECAN HYDROCHLORIDE
     Indication: Colon cancer
     Dosage: CHEMOTHERAPY II ORDER FOLFIRI NOX
     Dates: start: 202201, end: 202203
  6. IRINOTECAN HYDROCHLORIDE [Suspect]
     Active Substance: IRINOTECAN HYDROCHLORIDE
     Dosage: CHEMOTHERAPY FOLFIRI + BEVACIZUMAB
     Dates: start: 202204, end: 202207
  7. OXALIPLATIN [Suspect]
     Active Substance: OXALIPLATIN
     Indication: Adenocarcinoma metastatic
     Dosage: 5TH CHEMO; KT FOLFOXIRI AND BEVACIZUMAB BOTH IN 100% DOZE
     Dates: start: 20220107
  8. OXALIPLATIN [Suspect]
     Active Substance: OXALIPLATIN
     Indication: Colon cancer
     Dosage: CHEMOTHERAPY II ORDER FOLFIRI NOX
     Dates: start: 202201, end: 202203
  9. CAPECITABINE\OXALIPLATIN [Suspect]
     Active Substance: CAPECITABINE\OXALIPLATIN
     Indication: Adenocarcinoma metastatic
     Dosage: FIRST CHEMOTHERAPY WITH BEVACIZUMAB
     Dates: start: 20211015, end: 202112
  10. CAPECITABINE\OXALIPLATIN [Suspect]
     Active Substance: CAPECITABINE\OXALIPLATIN
     Indication: Colon cancer
  11. LEUCOVORIN CALCIUM [Suspect]
     Active Substance: LEUCOVORIN CALCIUM
     Indication: Adenocarcinoma metastatic
     Dosage: CHEMOTHERAPY II ORDER FOLFIRI NOX
     Dates: start: 202201, end: 202203
  12. LEUCOVORIN CALCIUM [Suspect]
     Active Substance: LEUCOVORIN CALCIUM
     Indication: Colon cancer
     Dosage: CHEMOTHERAPY FOLFIRI + BEVACIZUMAB
     Dates: start: 202204, end: 202207
  13. LEUCOVORIN [Suspect]
     Active Substance: LEUCOVORIN
     Indication: Adenocarcinoma metastatic
     Dosage: 5TH CHEMO; KT FOLFOXIRI AND BEVACIZUMAB BOTH IN 100% DOZE
     Dates: start: 20220107
  14. LEUCOVORIN [Suspect]
     Active Substance: LEUCOVORIN
     Indication: Colon cancer
  15. FLUOROURACIL [Suspect]
     Active Substance: FLUOROURACIL
     Indication: Adenocarcinoma metastatic
     Dosage: 5TH CHEMO; KT FOLFOXIRI AND BEVACIZUMAB BOTH IN 100% DOZE
     Dates: start: 20220107
  16. FLUOROURACIL [Suspect]
     Active Substance: FLUOROURACIL
     Indication: Colon cancer
     Dosage: CHEMOTHERAPY II ORDER FOLFIRI NOX
     Dates: start: 202201, end: 202203
  17. FLUOROURACIL [Suspect]
     Active Substance: FLUOROURACIL
     Dosage: CHEMOTHERAPY FOLFIRI + BEVACIZUMAB
     Dates: start: 202204, end: 202207

REACTIONS (4)
  - Deep vein thrombosis [Unknown]
  - Neutropenia [Unknown]
  - Neoplasm progression [Unknown]
  - Weight increased [Unknown]

NARRATIVE: CASE EVENT DATE: 20220204
